FAERS Safety Report 8336476-7 (Version None)
Quarter: 2012Q2

REPORT INFORMATION
  Report Type: 
  Country: None (occurrence: None)
  Receive Date: 20120504
  Receipt Date: 20120503
  Transmission Date: 20120825
  Serious: Yes (Death, Other)
  Sender: FDA-Public Use
  Company Number: PHEH2008US08722

PATIENT
  Sex: Female

DRUGS (36)
  1. TIMOPTIC [Concomitant]
  2. AVASTIN [Concomitant]
  3. AREDIA [Suspect]
     Indication: METASTASES TO BONE
     Dosage: QMO
     Route: 042
  4. MOBIC [Suspect]
  5. PRINIVIL [Concomitant]
  6. MEDROL [Concomitant]
  7. CARBOPLATIN [Concomitant]
  8. IOPAMIDOL [Concomitant]
  9. ZOMETA [Suspect]
     Indication: METASTASES TO BONE
     Dosage: QMO
     Route: 042
  10. OMEPRAZOLE [Concomitant]
  11. MORPHINE [Concomitant]
  12. CHEMOTHERAPEUTICS [Concomitant]
  13. DILAUDID [Concomitant]
  14. EPIRUBICIN [Concomitant]
  15. FASLODEX [Concomitant]
  16. MELOXICAM [Concomitant]
  17. XELODA [Concomitant]
  18. TOPAMAX [Concomitant]
     Dosage: 100 MG, BID
  19. TAXOL [Concomitant]
  20. PRAVASTATIN [Concomitant]
  21. CIPROFLOXACIN HCL [Concomitant]
  22. REGRANEX [Concomitant]
  23. FLUOROURACIL [Concomitant]
  24. CEPHALEXIN [Concomitant]
  25. TAMOXIFEN CITRATE [Concomitant]
  26. COUMADIN [Concomitant]
  27. PRILOSEC [Concomitant]
  28. OXYCODONE HCL [Concomitant]
  29. AMOXICILLIN AND CLAVULANATE POTASSIUM [Concomitant]
  30. CYMBALTA [Concomitant]
  31. TAXOTERE [Concomitant]
  32. CYTOXAN [Concomitant]
  33. GEMZAR [Suspect]
  34. MS CONTIN [Concomitant]
  35. FEMARA [Concomitant]
  36. TOBRADEX [Concomitant]

REACTIONS (99)
  - ABSCESS NECK [None]
  - NEOPLASM MALIGNANT [None]
  - METASTASES TO LIVER [None]
  - CHEST DISCOMFORT [None]
  - PALMAR-PLANTAR ERYTHRODYSAESTHESIA SYNDROME [None]
  - LYMPHADENOPATHY [None]
  - BARRETT'S OESOPHAGUS [None]
  - CERVICAL SPINAL STENOSIS [None]
  - RENAL FAILURE ACUTE [None]
  - PANCYTOPENIA [None]
  - BONE PAIN [None]
  - INTRAOCULAR PRESSURE INCREASED [None]
  - KERATOACANTHOMA [None]
  - CERUMEN IMPACTION [None]
  - WOUND INFECTION [None]
  - METASTASES TO CENTRAL NERVOUS SYSTEM [None]
  - HEPATIC MASS [None]
  - CARPAL TUNNEL SYNDROME [None]
  - THROMBOCYTOPENIA [None]
  - CERVICAL DYSPLASIA [None]
  - INTERVERTEBRAL DISC DEGENERATION [None]
  - DIPLOPIA [None]
  - HYPERCHOLESTEROLAEMIA [None]
  - ANAEMIA [None]
  - CONSTIPATION [None]
  - METASTASES TO SPINE [None]
  - HYDRONEPHROSIS [None]
  - DEPRESSION [None]
  - CEREBRAL ATROPHY [None]
  - INTERVERTEBRAL DISC PROTRUSION [None]
  - IMPAIRED HEALING [None]
  - DYSPNOEA [None]
  - ARTHRALGIA [None]
  - DECREASED APPETITE [None]
  - STRABISMUS [None]
  - FUNGAL INFECTION [None]
  - ECZEMA [None]
  - HEADACHE [None]
  - SINUS DISORDER [None]
  - OSTEOMYELITIS [None]
  - TOOTH INFECTION [None]
  - SKIN EXFOLIATION [None]
  - OSTEOPOROSIS [None]
  - BACK PAIN [None]
  - ABDOMINAL PAIN [None]
  - SKIN PAPILLOMA [None]
  - ACTINIC KERATOSIS [None]
  - SYNCOPE [None]
  - BRONCHITIS [None]
  - ANXIETY [None]
  - ANHEDONIA [None]
  - SYNOVIAL CYST [None]
  - METASTASES TO LYMPH NODES [None]
  - OESOPHAGEAL PAIN [None]
  - DUODENAL ULCER [None]
  - SPONDYLOLISTHESIS [None]
  - MUSCULOSKELETAL PAIN [None]
  - CHEST PAIN [None]
  - PARAESTHESIA [None]
  - VERTIGO [None]
  - CATARACT [None]
  - SEBORRHOEIC KERATOSIS [None]
  - MULTIPLE MYELOMA [None]
  - NEURALGIA [None]
  - DEATH [None]
  - OSTEONECROSIS OF JAW [None]
  - DISABILITY [None]
  - RENAL FAILURE CHRONIC [None]
  - OSTEOPENIA [None]
  - CYSTITIS [None]
  - OPHTHALMOPLEGIA [None]
  - OSTEOARTHRITIS [None]
  - PAIN IN EXTREMITY [None]
  - PEPTIC ULCER [None]
  - ALOPECIA [None]
  - VULVITIS [None]
  - DERMATITIS [None]
  - DEFORMITY [None]
  - HYPOAESTHESIA [None]
  - NEOPLASM PROGRESSION [None]
  - SPINAL OSTEOARTHRITIS [None]
  - ACQUIRED OESOPHAGEAL WEB [None]
  - FACET JOINT SYNDROME [None]
  - TENOSYNOVITIS STENOSANS [None]
  - HAEMORRHAGIC EROSIVE GASTRITIS [None]
  - DYSPEPSIA [None]
  - IMPAIRED GASTRIC EMPTYING [None]
  - PAIN [None]
  - METASTASES TO MENINGES [None]
  - METASTASES TO EYE [None]
  - HIATUS HERNIA [None]
  - LUMBAR SPINAL STENOSIS [None]
  - VERTEBRAL FORAMINAL STENOSIS [None]
  - METAPLASIA [None]
  - NIGHT SWEATS [None]
  - POLLAKIURIA [None]
  - SQUAMOUS CELL CARCINOMA [None]
  - DYSHIDROSIS [None]
  - EAR PAIN [None]
